FAERS Safety Report 5636561-4 (Version None)
Quarter: 2008Q1

REPORT INFORMATION
  Report Type: 
  Country: None (occurrence: None)
  Receive Date: 20080219
  Receipt Date: 20080219
  Transmission Date: 20080703
  Serious: Yes (Other)
  Sender: FDA-Public Use
  Company Number: None

PATIENT
  Age: 79 Year
  Sex: Male
  Weight: 77.1115 kg

DRUGS (2)
  1. FLOMAX [Suspect]
     Indication: PROSTATIC DISORDER
     Dosage: 0.4 MG. TWICE DAILY PO
     Route: 048
     Dates: start: 20080112, end: 20080114
  2. FLOMAX [Suspect]
     Indication: SWELLING
     Dosage: 0.4 MG. TWICE DAILY PO
     Route: 048
     Dates: start: 20080112, end: 20080114

REACTIONS (6)
  - ANGER [None]
  - DRUG HYPERSENSITIVITY [None]
  - HAEMORRHAGE [None]
  - PAIN [None]
  - PRURITUS [None]
  - URTICARIA [None]
